FAERS Safety Report 6645205-4 (Version None)
Quarter: 2010Q1

REPORT INFORMATION
  Report Type: 
  Country: None (occurrence: None)
  Receive Date: 20100322
  Receipt Date: 20100312
  Transmission Date: 20100710
  Serious: Yes (Hospitalization)
  Sender: FDA-Public Use
  Company Number: US-ABBOTT-10P-163-0632084-00

PATIENT
  Sex: Female
  Weight: 54.026 kg

DRUGS (19)
  1. HUMIRA [Suspect]
     Indication: CROHN'S DISEASE
     Dates: start: 20091231
  2. HUMIRA [Suspect]
     Dates: start: 20100311
  3. TRAZODONE HCL [Concomitant]
     Indication: INSOMNIA
  4. TRAZODONE HCL [Concomitant]
     Indication: PAIN
  5. ASPIRIN [Concomitant]
     Indication: CEREBROVASCULAR ACCIDENT
  6. AMIODARONE HCL [Concomitant]
     Indication: ATRIAL FIBRILLATION
  7. SIMETHICONE [Concomitant]
     Indication: FLATULENCE
  8. NEXIUM [Concomitant]
     Indication: NAUSEA
  9. NEXIUM [Concomitant]
     Indication: ABDOMINAL DISCOMFORT
  10. LEVOTHYROXINE SODIUM [Concomitant]
     Indication: HYPOTHYROIDISM
  11. MIRALAX [Concomitant]
     Indication: CONSTIPATION
  12. LOVAZA [Concomitant]
     Indication: BLOOD CHOLESTEROL INCREASED
  13. COLACE [Concomitant]
     Indication: CONSTIPATION PROPHYLAXIS
  14. VITAMIN C [Concomitant]
     Indication: DRUG USE FOR UNKNOWN INDICATION
  15. NEURONTIN [Concomitant]
     Indication: HERPES ZOSTER
  16. IRON PILLS [Concomitant]
     Indication: ANAEMIA
  17. PREDNISONE TAB [Concomitant]
     Indication: CROHN'S DISEASE
     Dosage: 40 MG WEANED DOWN
  18. TYLENOL-500 [Concomitant]
     Indication: PAIN
     Dosage: AS REQUIRED
  19. FELODIPINE [Concomitant]
     Indication: TRANSIENT ISCHAEMIC ATTACK
     Dosage: WITHHELD IF BLOOD PRESSURE {140

REACTIONS (5)
  - ABDOMINAL PAIN [None]
  - DIARRHOEA [None]
  - ENTERITIS [None]
  - NAUSEA [None]
  - VOMITING [None]
